FAERS Safety Report 14986013 (Version 2)
Quarter: 2018Q2

REPORT INFORMATION
  Report Type: Spontaneous
  Country: US (occurrence: US)
  Receive Date: 20180607
  Receipt Date: 20180607
  Transmission Date: 20180711
  Serious: Yes (Other)
  Sender: FDA-Public Use
  Company Number: US-BAUSCH-BL-2018-016235

PATIENT
  Age: 67 Year
  Sex: Female

DRUGS (4)
  1. FOLINIC ACID [Concomitant]
     Active Substance: LEUCOVORIN
     Indication: ADENOCARCINOMA PANCREAS
     Dosage: CYCLICAL
  2. IRINOTECAN [Concomitant]
     Active Substance: IRINOTECAN
     Indication: ADENOCARCINOMA PANCREAS
     Dosage: CYCLICAL
  3. FLUOROURACIL. [Suspect]
     Active Substance: FLUOROURACIL
     Indication: ADENOCARCINOMA PANCREAS
     Dosage: 7 CYCLICAL
     Route: 065
  4. OXALIPLATIN. [Concomitant]
     Active Substance: OXALIPLATIN
     Indication: ADENOCARCINOMA PANCREAS
     Dosage: CYCLICAL

REACTIONS (1)
  - Subacute cutaneous lupus erythematosus [Recovered/Resolved]
